FAERS Safety Report 16165343 (Version 1)
Quarter: 2019Q2

REPORT INFORMATION
  Report Type: Spontaneous
  Country: CA (occurrence: CA)
  Receive Date: 20190405
  Receipt Date: 20190405
  Transmission Date: 20190711
  Serious: Yes (Death)
  Sender: FDA-Public Use
  Company Number: CA-PFIZER INC-2019144501

PATIENT
  Age: 73 Year
  Sex: Male
  Weight: 62 kg

DRUGS (4)
  1. DILANTIN [PHENYTOIN] [Concomitant]
     Dosage: UNK UNK, QD
     Route: 065
  2. AVASTIN [SIMVASTATIN] [Suspect]
     Active Substance: SIMVASTATIN
     Indication: BRAIN NEOPLASM MALIGNANT
     Dosage: 710 MILLIGRAM, Q2WEEKS (ONCE EVERY TWO WEEKS)
     Route: 042
  3. PANTOPRAZOLE [Suspect]
     Active Substance: PANTOPRAZOLE
     Indication: BRAIN NEOPLASM MALIGNANT
     Dosage: UNK
     Route: 065
  4. AVASTIN [SIMVASTATIN] [Suspect]
     Active Substance: SIMVASTATIN
     Dosage: 621 MILLIGRAM, Q2WEEKS (ONCE EVERY TWO WEEKS)
     Route: 042

REACTIONS (9)
  - Asthenia [Fatal]
  - Death [Fatal]
  - Drug ineffective for unapproved indication [Unknown]
  - Fatigue [Fatal]
  - Vomiting [Fatal]
  - Weight decreased [Fatal]
  - Hiccups [Fatal]
  - Cough [Fatal]
  - Nausea [Fatal]
